FAERS Safety Report 4601935-7 (Version None)
Quarter: 2005Q1

REPORT INFORMATION
  Report Type: 
  Country: None (occurrence: None)
  Receive Date: 20050131
  Receipt Date: 20041203
  Transmission Date: 20050727
  Serious: No
  Sender: FDA-Public Use
  Company Number: 200418959US

PATIENT
  Age: 72 Year
  Sex: Female
  Weight: 63.6 kg

DRUGS (4)
  1. KETEK [Suspect]
     Indication: LUNG DISORDER
     Dosage: 800 MG/DAY PO
     Route: 048
     Dates: start: 20041115, end: 20041119
  2. ASPIRIN [Concomitant]
  3. SIMVASTATIN [Concomitant]
  4. MICARDIS [Concomitant]

REACTIONS (2)
  - ARTHRALGIA [None]
  - MYALGIA [None]
